FAERS Safety Report 16393082 (Version 2)
Quarter: 2019Q2

REPORT INFORMATION
  Report Type: Report from Study
  Country: US (occurrence: US)
  Receive Date: 20190605
  Receipt Date: 20190619
  Transmission Date: 20190711
  Serious: Yes (Hospitalization, Other)
  Sender: FDA-Public Use
  Company Number: US-ROCHE-2327973

PATIENT
  Age: 41 Year
  Sex: Male

DRUGS (3)
  1. OCREVUS [Suspect]
     Active Substance: OCRELIZUMAB
     Indication: RELAPSING-REMITTING MULTIPLE SCLEROSIS
     Dosage: ONGOING YES?5/MAR/2019, RECEIVED OCRELIZUMAB TREATMENT
     Route: 042
     Dates: start: 20190219
  2. GABAPENTIN. [Concomitant]
     Active Substance: GABAPENTIN
  3. DULOXETINE. [Concomitant]
     Active Substance: DULOXETINE

REACTIONS (6)
  - Infusion related reaction [Unknown]
  - Cellulitis [Recovered/Resolved]
  - Infection [Recovered/Resolved]
  - Sepsis [Recovered/Resolved]
  - Confusional state [Recovered/Resolved]
  - Somnolence [Recovered/Resolved]

NARRATIVE: CASE EVENT DATE: 20190219
